FAERS Safety Report 10425125 (Version 1)
Quarter: 2014Q3

REPORT INFORMATION
  Report Type: Spontaneous
  Country: JP (occurrence: JP)
  Receive Date: 20140902
  Receipt Date: 20140902
  Transmission Date: 20150326
  Serious: Yes (Life-Threatening, Other)
  Sender: FDA-Public Use
  Company Number: PHHY2010JP096696

PATIENT

DRUGS (6)
  1. TASIGNA [Suspect]
     Active Substance: NILOTINIB
     Dosage: 400 MG, UNK
     Dates: start: 20091106
  2. GLIVEC [Suspect]
     Active Substance: IMATINIB MESYLATE
     Dosage: 800 MG, UNK
  3. GLIVEC [Suspect]
     Active Substance: IMATINIB MESYLATE
     Dosage: 200 MG, UNK
  4. GLIVEC [Suspect]
     Active Substance: IMATINIB MESYLATE
     Dosage: 800 MG, UNK
  5. GLIVEC [Suspect]
     Active Substance: IMATINIB MESYLATE
     Dosage: 600 MG, UNK
  6. TASIGNA [Suspect]
     Active Substance: NILOTINIB
     Dosage: 800 MG, UNK

REACTIONS (5)
  - Dyspnoea [Recovering/Resolving]
  - Apparent death [Unknown]
  - Blood bilirubin increased [Unknown]
  - Pharyngeal oedema [Unknown]
  - Pancytopenia [Recovering/Resolving]
